FAERS Safety Report 5887577-4 (Version None)
Quarter: 2008Q3

REPORT INFORMATION
  Report Type: 
  Country: None (occurrence: None)
  Receive Date: 20080918
  Receipt Date: 20080912
  Transmission Date: 20090109
  Serious: Yes (Disabling, Other)
  Sender: FDA-Public Use
  Company Number: PHEH2008US07942

PATIENT
  Sex: Female
  Weight: 59.864 kg

DRUGS (13)
  1. RECLAST [Suspect]
     Indication: OSTEOPOROSIS
     Dosage: 5 MG, UNK
     Dates: start: 20080904, end: 20080904
  2. COUMADIN [Concomitant]
     Dosage: UNK, UNK
  3. LEVOTHYROXINE SODIUM [Concomitant]
     Dosage: UNK, UNK
  4. ATENOLOL [Concomitant]
     Dosage: UNK, UNK
  5. SIMVASTATIN [Concomitant]
     Dosage: UNK, UNK
  6. DETROL [Concomitant]
     Dosage: UNK, UNK
  7. MULTIVITAMINS, OTHER COMBINATIONS [Concomitant]
     Dosage: UNK, UNK
  8. CALCIUM GLUCONATE [Concomitant]
     Dosage: UNK, UNK
  9. LUTEIN [Concomitant]
     Dosage: UNK, UNK
  10. MAGNESIUM SULFATE [Concomitant]
     Dosage: UNK, UNK
  11. LOVAZA [Concomitant]
     Dosage: UNK, UNK
  12. BILBERRY [Concomitant]
     Dosage: UNK, UNK
  13. CONQUER HA [Concomitant]
     Dosage: UNK, UNK

REACTIONS (8)
  - ARTHRALGIA [None]
  - ARTHRITIS [None]
  - BACK PAIN [None]
  - BLOOD CALCIUM DECREASED [None]
  - FATIGUE [None]
  - GAIT DISTURBANCE [None]
  - MUSCULOSKELETAL DISORDER [None]
  - OEDEMA PERIPHERAL [None]
